FAERS Safety Report 9822084 (Version 15)
Quarter: 2014Q2

REPORT INFORMATION
  Report Type: Spontaneous
  Country: US (occurrence: US)
  Receive Date: 20140116
  Receipt Date: 20140624
  Transmission Date: 20141212
  Serious: Yes (Hospitalization, Other)
  Sender: FDA-Public Use
  Company Number: PHEH2010US003950

PATIENT
  Age: 41 Year
  Sex: Female

DRUGS (52)
  1. ZOMETA [Suspect]
     Indication: OSTEOPENIA
     Dosage: UNK UKN, UNK
     Route: 042
     Dates: start: 200512
  2. ZOMETA [Suspect]
     Dosage: UNK UKN, UNK
     Route: 042
     Dates: start: 2006
  3. ALBUTEROL [Concomitant]
  4. NEURONTIN [Concomitant]
  5. ZESTRIL [Concomitant]
  6. AUGMENTIN [Concomitant]
  7. FLOVENT [Concomitant]
  8. VANCOMYCIN [Concomitant]
  9. DEMEROL [Concomitant]
  10. PERCOCET [Concomitant]
  11. VICODIN [Concomitant]
  12. PENTASA ^FERRING^ [Concomitant]
  13. TARCEVA [Concomitant]
  14. DILAUDID [Concomitant]
  15. PROTONIX ^PHARMACIA^ [Concomitant]
  16. WELLBUTRIN                         /00700502/ [Concomitant]
  17. ASACOL [Concomitant]
  18. HUMULIN [Concomitant]
  19. SIMVASTATIN [Concomitant]
  20. SPIRIVA [Concomitant]
  21. TRIAMTERENE AND HYDROCHLOROTHIAZID ^HARRIS^ [Concomitant]
  22. COLACE [Concomitant]
     Dosage: 100 MG, BID
     Route: 048
  23. REGLAN                                  /USA/ [Concomitant]
     Dosage: 5 MG, Q6H
     Route: 048
  24. LIDOCAINE [Concomitant]
     Dosage: 1 DF, Q12H
     Route: 061
  25. ASPIRIN [Concomitant]
     Dosage: 81 MG,
     Route: 048
  26. COMBIVENT [Concomitant]
  27. LANTUS [Concomitant]
     Dosage: 70 U, QD
     Route: 058
  28. LISINOPRIL [Concomitant]
     Dosage: 5 MG, BID
     Route: 048
  29. METFORMIN [Concomitant]
     Dosage: 1000 MG, BID
     Route: 048
  30. NICOTINE [Concomitant]
     Dosage: 21 MG, QD
  31. BENADRYL [Concomitant]
     Dosage: 25 MG, Q6H, PRN
     Route: 048
  32. AVELOX [Concomitant]
     Dosage: 400 MG, QD
     Route: 042
  33. UNASYN [Concomitant]
     Dosage: 3 G, Q6H
     Route: 042
  34. NARCAN [Concomitant]
     Dosage: 0.04 MG,
     Route: 042
  35. METHADONE [Concomitant]
     Dosage: 20 MG, TID
  36. MOXIFLOXACIN [Concomitant]
     Dosage: 400 MG, QD
     Route: 042
  37. DIPHENHYDRAMINE HYDROCHLORIDE [Concomitant]
  38. ATIVAN [Concomitant]
     Dosage: 2 DF, QHS
     Route: 048
  39. LOPERAMIDE HYDROCHLORIDE [Concomitant]
     Dosage: 2 DF,
     Route: 048
  40. GLUCOPHAGE [Concomitant]
     Dosage: 2 G, QD
  41. ZOCOR [Concomitant]
     Dosage: 10 MG, QD
  42. ANTICOAGULANTS [Concomitant]
  43. DOXYCYCLINE [Concomitant]
     Dosage: 100 MG, BID
     Route: 048
  44. CHANTIX [Concomitant]
     Dosage: 1 MG, BID
     Route: 048
  45. PROVENTIL [Concomitant]
     Dosage: 2 PUFFS, Q4H
  46. SYMBICORT [Concomitant]
     Dosage: 2 PUFFS, BID
  47. SYMLIN [Concomitant]
     Dosage: 45 UG,
  48. METHOTREXAT [Concomitant]
  49. CLEOCIN [Concomitant]
  50. LIPITOR [Concomitant]
     Dosage: 40 MG, QD
     Route: 048
  51. LOSARTAN POTASSIUM [Concomitant]
     Dosage: 25 MG, QD
  52. METOPROLOL TARTRATE [Concomitant]
     Dosage: 12.5 MG, BID

REACTIONS (200)
  - Vomiting [Unknown]
  - Nausea [Unknown]
  - Musculoskeletal discomfort [Unknown]
  - Lung infection [Unknown]
  - Chronic obstructive pulmonary disease [Unknown]
  - Dyspnoea [Unknown]
  - Osteonecrosis of jaw [Unknown]
  - Mastication disorder [Unknown]
  - Pain [Unknown]
  - Deformity [Unknown]
  - Emotional distress [Unknown]
  - Anxiety [Unknown]
  - Activities of daily living impaired [Unknown]
  - Periodontitis [Unknown]
  - Quality of life decreased [Unknown]
  - Gingivitis [Unknown]
  - Bone loss [Unknown]
  - Purulent discharge [Unknown]
  - Exposed bone in jaw [Unknown]
  - Osteolysis [Unknown]
  - Osteitis [Unknown]
  - Primary sequestrum [Unknown]
  - Tooth abscess [Unknown]
  - Lymphadenopathy [Unknown]
  - Chronic sinusitis [Unknown]
  - Obstructive airways disorder [Unknown]
  - Pulmonary mass [Unknown]
  - Hepatic steatosis [Unknown]
  - Cardiac failure congestive [Unknown]
  - Pleural effusion [Unknown]
  - Atelectasis [Unknown]
  - Diverticulitis [Unknown]
  - Deep vein thrombosis [Unknown]
  - Colitis ulcerative [Unknown]
  - Sleep apnoea syndrome [Unknown]
  - Tooth loss [Unknown]
  - Diarrhoea haemorrhagic [Unknown]
  - Adrenal disorder [Unknown]
  - Emphysema [Unknown]
  - Dyspnoea exertional [Unknown]
  - Hiatus hernia [Unknown]
  - Ileus [Unknown]
  - Intervertebral disc disorder [Unknown]
  - Intervertebral disc degeneration [Unknown]
  - Intervertebral disc space narrowing [Unknown]
  - Diarrhoea [Unknown]
  - Tachycardia [Unknown]
  - Crohn^s disease [Unknown]
  - Streptococcal infection [Unknown]
  - Exophthalmos [Unknown]
  - Vision blurred [Unknown]
  - Claustrophobia [Unknown]
  - Haematuria [Unknown]
  - Osteoporosis [Unknown]
  - Adenocarcinoma [Unknown]
  - Proteinuria [Unknown]
  - Palpitations [Unknown]
  - Osteomyelitis [Unknown]
  - Chest pain [Unknown]
  - Metatarsus primus varus [Unknown]
  - Bone cyst [Unknown]
  - Renal failure chronic [Unknown]
  - Peripheral venous disease [Unknown]
  - Cerebral ischaemia [Unknown]
  - Somnolence [Unknown]
  - Hypoxia [Unknown]
  - Reversible airways obstruction [Unknown]
  - Lung disorder [Unknown]
  - Panic attack [Unknown]
  - Drug withdrawal syndrome [Unknown]
  - Hallucination [Unknown]
  - Hypertension [Unknown]
  - Dizziness [Unknown]
  - Thrombophlebitis [Unknown]
  - Sepsis [Unknown]
  - Varicose vein [Unknown]
  - Peripheral vascular disorder [Unknown]
  - Carotid artery stenosis [Unknown]
  - Glaucoma [Unknown]
  - Retinopathy [Unknown]
  - Rheumatoid arthritis [Unknown]
  - Nerve injury [Unknown]
  - Arthropathy [Unknown]
  - Radiculitis lumbosacral [Unknown]
  - Induration [Unknown]
  - Skin hyperpigmentation [Unknown]
  - Hyperplasia [Unknown]
  - Stress fracture [Unknown]
  - Foot fracture [Unknown]
  - Intervertebral disc displacement [Unknown]
  - Rib deformity [Unknown]
  - Paralysis [Unknown]
  - Tinea pedis [Unknown]
  - Gait disturbance [Unknown]
  - Pleural fibrosis [Unknown]
  - Bone marrow oedema [Unknown]
  - Bone contusion [Unknown]
  - Myocardial infarction [Unknown]
  - Complex regional pain syndrome [Unknown]
  - Carpal tunnel syndrome [Unknown]
  - Dehydration [Unknown]
  - Arteriosclerosis coronary artery [Unknown]
  - Lumbar vertebral fracture [Unknown]
  - Clavicle fracture [Unknown]
  - Acute coronary syndrome [Unknown]
  - Angina unstable [Unknown]
  - Cardiomegaly [Unknown]
  - Neoplasm [Unknown]
  - Rib fracture [Unknown]
  - Arteriosclerosis [Unknown]
  - Vascular calcification [Unknown]
  - Hepatomegaly [Unknown]
  - Mental status changes [Unknown]
  - Limb injury [Unknown]
  - Diabetic foot [Unknown]
  - Contusion [Unknown]
  - Haematoma [Unknown]
  - Irritable bowel syndrome [Unknown]
  - Radicular pain [Unknown]
  - Spinal osteoarthritis [Unknown]
  - Cellulitis [Unknown]
  - Radiculitis cervical [Unknown]
  - Bursitis [Unknown]
  - Lower extremity mass [Unknown]
  - Herpes zoster [Unknown]
  - Renal failure acute [Unknown]
  - Ovarian cyst [Unknown]
  - Thrombophlebitis superficial [Unknown]
  - Bone lesion [Unknown]
  - Exostosis [Unknown]
  - Coronary artery occlusion [Unknown]
  - Abdominal hernia [Unknown]
  - Bone cancer [Unknown]
  - Pathological fracture [Unknown]
  - Ventricular hypokinesia [Unknown]
  - Lung infiltration [Unknown]
  - Hypotension [Unknown]
  - Jaw cyst [Unknown]
  - Osteonecrosis [Unknown]
  - Actinomycosis [Unknown]
  - Deafness [Unknown]
  - Ear infection [Unknown]
  - Foot deformity [Recovered/Resolved]
  - Neuropathic arthropathy [Recovered/Resolved]
  - Pulmonary calcification [Unknown]
  - Pulmonary granuloma [Unknown]
  - Vertebral foraminal stenosis [Unknown]
  - Muscle strain [Unknown]
  - Joint range of motion decreased [Unknown]
  - Joint effusion [Unknown]
  - Hyponatraemia [Unknown]
  - Hypochloraemia [Unknown]
  - Vitamin D deficiency [Unknown]
  - Oropharyngeal pain [Unknown]
  - Eustachian tube dysfunction [Unknown]
  - Nasal septum deviation [Unknown]
  - Animal bite [Unknown]
  - Spinal deformity [Unknown]
  - Tendonitis [Unknown]
  - Cardiomyopathy [Unknown]
  - Lumbar radiculopathy [Unknown]
  - Hypoalbuminaemia [Unknown]
  - Coronary artery disease [Unknown]
  - Pain in jaw [Unknown]
  - Oral infection [Unknown]
  - Kidney fibrosis [Unknown]
  - Aortic disorder [Unknown]
  - Thrombosis [Unknown]
  - Urinary incontinence [Unknown]
  - Metaplasia [Unknown]
  - Albumin urine present [Unknown]
  - Urethral dilatation [Unknown]
  - Deformity thorax [Unknown]
  - Post procedural complication [Unknown]
  - Orthopnoea [Unknown]
  - Electrocardiogram T wave abnormal [Unknown]
  - Electrocardiogram QT shortened [Unknown]
  - Respiratory distress [Unknown]
  - Speech disorder [Unknown]
  - Sinus tachycardia [Unknown]
  - Tracheal pain [Unknown]
  - Lumbar spinal stenosis [Unknown]
  - Spinal disorder [Unknown]
  - Defect conduction intraventricular [Unknown]
  - Sinus arrhythmia [Unknown]
  - Joint injury [Unknown]
  - Vaginal infection [Unknown]
  - Mastitis [Unknown]
  - Wound [Unknown]
  - Vulvovaginal candidiasis [Unknown]
  - Swelling [Unknown]
  - Chest discomfort [Unknown]
  - Intervertebral disc protrusion [Unknown]
  - Radiculitis brachial [Unknown]
  - Haematochezia [Unknown]
  - Urine odour abnormal [Unknown]
  - Essential hypertension [Unknown]
  - Abdominal distension [Unknown]
  - Fatigue [Unknown]
  - Electrocardiogram ST segment abnormal [Unknown]
